FAERS Safety Report 6946519-0 (Version None)
Quarter: 2010Q3

REPORT INFORMATION
  Report Type: 
  Country: None (occurrence: None)
  Receive Date: 20100827
  Receipt Date: 20090806
  Transmission Date: 20110219
  Serious: No
  Sender: FDA-Public Use
  Company Number: US-ABBOTT-09P-163-0589854-00

PATIENT
  Sex: Male
  Weight: 122.58 kg

DRUGS (3)
  1. NIASPAN [Suspect]
     Indication: PRODUCT USED FOR UNKNOWN INDICATION
     Dates: start: 20090601
  2. NIASPAN [Suspect]
     Dosage: GRADUALLY INCREASED FROM 500 MILLIGRAMS
     Dates: end: 20090801
  3. ASPIRIN [Concomitant]
     Indication: PRODUCT USED FOR UNKNOWN INDICATION

REACTIONS (3)
  - PRURITUS [None]
  - SCRATCH [None]
  - WOUND HAEMORRHAGE [None]
